FAERS Safety Report 11058285 (Version 2)
Quarter: 2015Q3

REPORT INFORMATION
  Report Type: Report from Study
  Country: DE (occurrence: DE)
  Receive Date: 20150423
  Receipt Date: 20150817
  Transmission Date: 20151125
  Serious: Yes (Hospitalization)
  Sender: FDA-Public Use
  Company Number: DE-MERCK-1504DEU020138

PATIENT
  Age: 61 Year
  Sex: Female

DRUGS (16)
  1. DEXAMETHASONE. [Suspect]
     Active Substance: DEXAMETHASONE
     Indication: ANALGESIC THERAPY
     Dosage: TOTAL DAILY DOSE: 6 MG, UNK
     Route: 065
     Dates: start: 201112
  2. LEVOTHYROXINE SODIUM. [Concomitant]
     Active Substance: LEVOTHYROXINE SODIUM
     Dosage: 50 MICROGRAM, UNK
     Dates: start: 1992, end: 20120405
  3. VIGANTOLETTEN [Concomitant]
     Active Substance: CHOLECALCIFEROL
     Dosage: 2 DF, UNK
     Dates: start: 201111
  4. AMPHOTERICIN B. [Concomitant]
     Active Substance: AMPHOTERICIN B
     Dosage: TOTAL DAILY DOSE: 4 ML, UNK
     Dates: start: 201112, end: 201204
  5. DEXAMETHASONE. [Suspect]
     Active Substance: DEXAMETHASONE
     Dosage: 1.5 UNIT, QD
     Route: 065
     Dates: start: 20120209, end: 20120405
  6. LYRICA [Concomitant]
     Active Substance: PREGABALIN
     Dosage: 75 MICROGRAM, UNK
     Dates: start: 201112, end: 20120405
  7. TRANSTEC [Concomitant]
     Active Substance: BUPRENORPHINE
     Dosage: 70 MICROGRAM, BIW
     Dates: start: 201112, end: 20120314
  8. ARCOXIA 90 MG FILMTABLETTEN [Concomitant]
     Dosage: TOTAL DAILY DOSE: 90 MG, UNK
     Dates: start: 201112, end: 20120312
  9. VEMURAFENIB [Suspect]
     Active Substance: VEMURAFENIB
     Dosage: TOTAL DAILY DOSE: 960 MG, UNK
     Route: 048
     Dates: start: 20120412, end: 20120412
  10. CALCIGEN [Concomitant]
     Dosage: TOTAL DAILY DOSE: 1200 MG
     Dates: start: 2011, end: 201204
  11. PANTOPRAZOLE [Concomitant]
     Active Substance: PANTOPRAZOLE SODIUM
     Dosage: TOTAL DAILY DOSE: 80 MG, UNK
     Dates: start: 201201, end: 20120405
  12. TAVOR [Concomitant]
     Active Substance: LORAZEPAM
     Dosage: 1 MG, PRN
     Dates: start: 201112, end: 20120405
  13. VEMURAFENIB [Suspect]
     Active Substance: VEMURAFENIB
     Indication: METASTATIC MALIGNANT MELANOMA
     Dosage: 960 MG, BID (2 IN 1 D)
     Route: 048
     Dates: start: 20120116, end: 20120312
  14. ARCOXIA 90 MG FILMTABLETTEN [Concomitant]
     Dosage: 90 MICROGRAM, UNK
     Dates: start: 201112, end: 20120405
  15. PANTOPRAZOLE [Concomitant]
     Active Substance: PANTOPRAZOLE SODIUM
     Dosage: 1 DF, UNK
     Dates: start: 2011
  16. DOCOSAHEXAENOIC ACID/DOCOSAHEXAENOIC ACID (+) EICOSAPENTAENOIC ACID/EICOSAPENTAENOIC ACID [Concomitant]
     Dosage: TOTAL DAILY DOSE: 1000 MG, UNK
     Dates: start: 20120112, end: 20120312

REACTIONS (1)
  - Gastrointestinal haemorrhage [Recovered/Resolved]

NARRATIVE: CASE EVENT DATE: 20120312
